FAERS Safety Report 7470798-7 (Version None)
Quarter: 2011Q2

REPORT INFORMATION
  Report Type: 
  Country: None (occurrence: None)
  Receive Date: 20110506
  Receipt Date: 20110506
  Transmission Date: 20111010
  Serious: No
  Sender: FDA-Public Use
  Company Number: None

PATIENT
  Age: 53 Year
  Sex: Female
  Weight: 56.6996 kg

DRUGS (1)
  1. CIPROFLOXACIN [Suspect]
     Indication: BACTERIAL INFECTION
     Dosage: 20 QTY TWICE A DAY PO
     Route: 048
     Dates: start: 20110415, end: 20110417

REACTIONS (4)
  - NAUSEA [None]
  - MUSCULOSKELETAL STIFFNESS [None]
  - FATIGUE [None]
  - HEADACHE [None]
